FAERS Safety Report 19138047 (Version 8)
Quarter: 2021Q3

REPORT INFORMATION
  Report Type: Report from Study
  Country: CA (occurrence: CA)
  Receive Date: 20210415
  Receipt Date: 20210907
  Transmission Date: 20211014
  Serious: Yes (Hospitalization)
  Sender: FDA-Public Use
  Company Number: CA-ROCHE-2808024

PATIENT
  Age: 68 Year
  Sex: Female
  Weight: 83.5 kg

DRUGS (30)
  1. TYLENOL [Concomitant]
     Active Substance: ACETAMINOPHEN
     Indication: BACK PAIN
     Route: 048
     Dates: start: 202012, end: 20210329
  2. PANTOPRAZOLE [Concomitant]
     Active Substance: PANTOPRAZOLE
     Route: 048
     Dates: start: 20210409, end: 20210422
  3. COVID?19 VACCINE [Concomitant]
     Route: 058
     Dates: start: 20210604
  4. COBIMETINIB. [Suspect]
     Active Substance: COBIMETINIB
     Indication: NON-SMALL CELL LUNG CANCER METASTATIC
     Dosage: ON 04/APR/2021, SHE RECEIVED MOST RECENT DOSE OF COBIMETINIB (40 MG) PRIOR TO ONSET OF SERIOUS ADVER
     Route: 048
     Dates: start: 20210317
  5. PREDNISONE. [Concomitant]
     Active Substance: PREDNISONE
     Dates: start: 20210414, end: 20210414
  6. PERINDOPRIL [Concomitant]
     Active Substance: PERINDOPRIL
     Route: 048
     Dates: start: 2006
  7. SALBUTAMOL [Concomitant]
     Active Substance: ALBUTEROL
     Indication: ASTHMA
     Dates: start: 200101
  8. ADVIL [Concomitant]
     Active Substance: IBUPROFEN
     Indication: PYREXIA
     Route: 048
     Dates: start: 20210405
  9. CODEINE [Concomitant]
     Active Substance: CODEINE
     Indication: BACK PAIN
     Route: 048
     Dates: start: 20210331
  10. SEPTRA [Concomitant]
     Active Substance: SULFAMETHOXAZOLE\TRIMETHOPRIM
     Indication: URINARY TRACT INFECTION
     Route: 048
     Dates: start: 20210526, end: 20210526
  11. PERINDOPRIL [Concomitant]
     Active Substance: PERINDOPRIL
     Indication: HYPERTENSION
     Route: 048
     Dates: start: 200605
  12. CODEINE [Concomitant]
     Active Substance: CODEINE
     Indication: PAIN IN EXTREMITY
  13. METHYLPREDNISOLONE. [Concomitant]
     Active Substance: METHYLPREDNISOLONE
     Dates: start: 20210408
  14. PREDNISONE. [Concomitant]
     Active Substance: PREDNISONE
     Dates: start: 20210502, end: 20210504
  15. CRESTOR [Concomitant]
     Active Substance: ROSUVASTATIN CALCIUM
     Indication: DYSLIPIDAEMIA
     Route: 048
     Dates: start: 200606
  16. FLUTICASONE PROPIONATE. [Concomitant]
     Active Substance: FLUTICASONE PROPIONATE
     Indication: ASTHMA
     Dates: start: 200105
  17. PREGABALIN. [Concomitant]
     Active Substance: PREGABALIN
     Route: 048
     Dates: start: 20210302
  18. PREDNISONE. [Concomitant]
     Active Substance: PREDNISONE
     Dates: start: 20210505, end: 20210511
  19. PREDNISONE. [Concomitant]
     Active Substance: PREDNISONE
     Dates: start: 20210424, end: 20210501
  20. ENOXAPARIN [Concomitant]
     Active Substance: ENOXAPARIN
     Route: 058
     Dates: start: 20210407
  21. SENNA [Concomitant]
     Active Substance: SENNA LEAF\SENNOSIDES\SENNOSIDES A AND B
     Indication: CONSTIPATION
     Route: 048
     Dates: start: 202012
  22. K?DUR [Concomitant]
     Active Substance: POTASSIUM CHLORIDE
     Dosage: 40 OTHER
     Route: 048
     Dates: start: 20210409
  23. CODEINE [Concomitant]
     Active Substance: CODEINE
     Indication: BREAST PAIN
  24. ADENOSINE. [Concomitant]
     Active Substance: ADENOSINE
     Route: 042
     Dates: start: 20210622, end: 20210622
  25. PREDNISONE. [Concomitant]
     Active Substance: PREDNISONE
     Indication: BLOOD CREATINE PHOSPHOKINASE INCREASED
     Dates: start: 20210409, end: 20210413
  26. PREDNISONE. [Concomitant]
     Active Substance: PREDNISONE
     Indication: RASH
     Dates: start: 20210419, end: 20210423
  27. VEMURAFENIB. [Suspect]
     Active Substance: VEMURAFENIB
     Indication: NON-SMALL CELL LUNG CANCER METASTATIC
     Dosage: ON 04/APR/2021, SHE RECEIVED MOST RECENT DOSE OF VEMURAFENIB (720 MG) PRIOR TO ONSET OF SERIOUS ADVE
     Route: 048
     Dates: start: 20210317
  28. VERAPAMIL [Concomitant]
     Active Substance: VERAPAMIL HYDROCHLORIDE
     Indication: HYPERTENSION
     Route: 048
     Dates: start: 201605
  29. SEPTRA [Concomitant]
     Active Substance: SULFAMETHOXAZOLE\TRIMETHOPRIM
     Indication: URINARY TRACT INFECTION
     Route: 048
     Dates: start: 20210526, end: 20210601
  30. BENADRYL [Concomitant]
     Active Substance: DIPHENHYDRAMINE HYDROCHLORIDE
     Indication: RASH MACULO-PAPULAR
     Route: 048
     Dates: start: 20210403

REACTIONS (5)
  - Fatigue [Recovering/Resolving]
  - Pyrexia [Recovered/Resolved]
  - Blood creatine phosphokinase increased [Recovered/Resolved]
  - Diarrhoea [Recovered/Resolved]
  - Rash maculo-papular [Recovered/Resolved]

NARRATIVE: CASE EVENT DATE: 20210320
